FAERS Safety Report 8409505-X (Version None)
Quarter: 2012Q2

REPORT INFORMATION
  Report Type: 
  Country: None (occurrence: None)
  Receive Date: 20120531
  Receipt Date: 20120531
  Transmission Date: 20120825
  Serious: Yes (Hospitalization, Disabling)
  Sender: FDA-Public Use
  Company Number: None

PATIENT
  Age: 66 Year
  Sex: Female
  Weight: 54.5 kg

DRUGS (2)
  1. CRESTOR [Suspect]
     Indication: HYPERCHOLESTEROLAEMIA
     Dosage: 20 MG ONCE A DAY ORAL  2 DOSES EARLY NOVEMBER 2009 2 DOSES MID DECEMBER 2009
     Route: 048
     Dates: start: 20091101
  2. CRESTOR [Suspect]
     Indication: HYPERCHOLESTEROLAEMIA
     Dosage: 20 MG ONCE A DAY ORAL  2 DOSES EARLY NOVEMBER 2009 2 DOSES MID DECEMBER 2009
     Route: 048
     Dates: start: 20091201

REACTIONS (8)
  - TREMOR [None]
  - ABASIA [None]
  - DIZZINESS [None]
  - NAUSEA [None]
  - VERTIGO [None]
  - DEAFNESS UNILATERAL [None]
  - VOMITING [None]
  - LABYRINTHITIS [None]
